FAERS Safety Report 8594059-8 (Version None)
Quarter: 2012Q3

REPORT INFORMATION
  Report Type: 
  Country: None (occurrence: None)
  Receive Date: 20120814
  Receipt Date: 20120807
  Transmission Date: 20120928
  Serious: Yes (Other)
  Sender: FDA-Public Use
  Company Number: PHHY2012BG068256

PATIENT
  Age: 39 Year
  Sex: Male

DRUGS (2)
  1. AMPHOTERICIN B [Concomitant]
  2. FLUCONAZOLE [Suspect]
     Indication: ENDOCARDITIS
     Dosage: 400 MG

REACTIONS (2)
  - DRUG RESISTANCE [None]
  - CARDIAC VALVE VEGETATION [None]
